FAERS Safety Report 9230902 (Version 1)
Quarter: 2013Q1

REPORT INFORMATION
  Report Type: Spontaneous
  Country: US (occurrence: None)
  Receive Date: 20121031
  Receipt Date: 20121031
  Transmission Date: 20140127
  Serious: No
  Sender: FDA-Public Use
  Company Number: PHEH2012US013845

PATIENT
  Age: 23 Year
  Sex: Male

DRUGS (1)
  1. GILENYA (FTY)CAPSULE,0.5MG [Suspect]
     Indication: MULTIPLE SCLEROSIS
     Route: 048
     Dates: start: 20120609

REACTIONS (1)
  - Tremor [None]
